FAERS Safety Report 5362271-7 (Version None)
Quarter: 2007Q2

REPORT INFORMATION
  Report Type: 
  Country: None (occurrence: None)
  Receive Date: 20070619
  Receipt Date: 20070607
  Transmission Date: 20071010
  Serious: Yes (Death)
  Sender: FDA-Public Use
  Company Number: US-SANOFI-SYNTHELABO-A03200703616

PATIENT
  Age: 77 Year
  Sex: Female

DRUGS (12)
  1. ACIPHEX [Concomitant]
     Route: 048
  2. DARVOCET [Concomitant]
     Indication: PAIN
     Route: 048
  3. ALPRAZOLAM [Concomitant]
     Route: 048
  4. PREGABALIN [Concomitant]
     Route: 048
  5. ASPIRIN [Concomitant]
     Route: 048
  6. MULTI-VITAMIN [Concomitant]
     Route: 048
  7. CALCIUM CHLORIDE [Concomitant]
     Route: 048
  8. NEXIUM [Concomitant]
     Route: 048
  9. TRIAMTERENE AND HYDROCHLOROTHIAZIDE [Concomitant]
     Dosage: 75/50 MG DAILY
     Route: 048
  10. CLONAZEPAM [Concomitant]
     Dosage: 1-2 MG EVERY HS
     Route: 048
  11. PREMARIN [Concomitant]
     Route: 048
  12. PLAVIX [Suspect]
     Indication: STENT PLACEMENT
     Route: 048
     Dates: start: 20070518, end: 20070518

REACTIONS (2)
  - DEATH [None]
  - THROMBOSIS IN DEVICE [None]
